FAERS Safety Report 15465360 (Version 2)
Quarter: 2019Q1

REPORT INFORMATION
  Report Type: Spontaneous
  Country: JP (occurrence: JP)
  Receive Date: 20181004
  Receipt Date: 20190212
  Transmission Date: 20190417
  Serious: Yes (Life-Threatening, Other)
  Sender: FDA-Public Use
  Company Number: JP-BAUSCH-BL-2018-026203

PATIENT
  Age: 12 Year
  Sex: Male

DRUGS (5)
  1. VINCRISTINE [Suspect]
     Active Substance: VINCRISTINE
     Indication: T-CELL TYPE ACUTE LEUKAEMIA
     Dosage: TRIPLE INTRATHECAL THERAPY
     Route: 037
  2. DAUNORUBICIN [Suspect]
     Active Substance: DAUNORUBICIN
     Indication: T-CELL TYPE ACUTE LEUKAEMIA
     Dosage: TRIPLE INTRATHECAL THERAPY
     Route: 037
  3. PREDNISOLONE. [Suspect]
     Active Substance: PREDNISOLONE
     Indication: T-CELL TYPE ACUTE LEUKAEMIA
     Route: 065
  4. DEXAMETHASONE. [Suspect]
     Active Substance: DEXAMETHASONE
     Indication: T-CELL TYPE ACUTE LEUKAEMIA
     Route: 065
  5. L-ASPARAGINASE [Suspect]
     Active Substance: ASPARAGINASE
     Indication: T-CELL TYPE ACUTE LEUKAEMIA
     Dosage: TRIPLE INTRATHECAL THERAPY
     Route: 037

REACTIONS (8)
  - Vitamin B1 decreased [Recovered/Resolved]
  - Body mass index decreased [Unknown]
  - Blood bilirubin increased [Unknown]
  - Hypophagia [Unknown]
  - Wernicke^s encephalopathy [Recovered/Resolved]
  - Blood albumin decreased [Unknown]
  - Nausea [Unknown]
  - Hypertransaminasaemia [Unknown]
